FAERS Safety Report 21487000 (Version 1)
Quarter: 2022Q4

REPORT INFORMATION
  Report Type: Report from Study
  Country: IN (occurrence: IN)
  Receive Date: 20221020
  Receipt Date: 20221020
  Transmission Date: 20230113
  Serious: Yes (Hospitalization)
  Sender: FDA-Public Use
  Company Number: IN-NOVARTISPH-NVSC2022IN233747

PATIENT
  Age: 27 Year
  Sex: Male

DRUGS (3)
  1. NEORAL [Suspect]
     Active Substance: CYCLOSPORINE
     Indication: Renal transplant
     Dosage: 150 MG, BID
     Route: 065
     Dates: start: 20221010
  2. MYFORTIC [Suspect]
     Active Substance: MYCOPHENOLATE SODIUM
     Indication: Renal transplant
     Dosage: 360 MG, BID
     Route: 065
     Dates: start: 20220831
  3. TACROLIMUS [Suspect]
     Active Substance: TACROLIMUS
     Indication: Renal transplant
     Dosage: 2.5 MG, BID
     Route: 065
     Dates: start: 20220831, end: 20221009

REACTIONS (4)
  - Pain in extremity [Recovered/Resolved]
  - Bone marrow oedema [Recovered/Resolved with Sequelae]
  - Acute kidney injury [Recovered/Resolved with Sequelae]
  - Pain [Recovered/Resolved]

NARRATIVE: CASE EVENT DATE: 20221006
